FAERS Safety Report 7815779-6 (Version None)
Quarter: 2011Q4

REPORT INFORMATION
  Report Type: 
  Country: None (occurrence: None)
  Receive Date: 20111014
  Receipt Date: 20111013
  Transmission Date: 20120403
  Serious: Yes (Other)
  Sender: FDA-Public Use
  Company Number: AU-ROCHE-1000604

PATIENT
  Sex: Female

DRUGS (2)
  1. HERCEPTIN [Suspect]
     Indication: BREAST CANCER METASTATIC
  2. DOCETAXEL [Concomitant]
     Indication: BREAST CANCER METASTATIC

REACTIONS (2)
  - MYALGIA [None]
  - MYELODYSPLASTIC SYNDROME [None]
